FAERS Safety Report 6906980-4 (Version None)
Quarter: 2010Q3

REPORT INFORMATION
  Report Type: 
  Country: None (occurrence: None)
  Receive Date: 20100804
  Receipt Date: 20080125
  Transmission Date: 20110219
  Serious: No
  Sender: FDA-Public Use
  Company Number: US-PFIZER INC-2008008163

PATIENT
  Age: 43 Year
  Sex: Male

DRUGS (1)
  1. ZARONTIN [Suspect]

REACTIONS (1)
  - LIBIDO INCREASED [None]
